FAERS Safety Report 7311659-3 (Version None)
Quarter: 2011Q1

REPORT INFORMATION
  Report Type: 
  Country: None (occurrence: None)
  Receive Date: 20110215
  Receipt Date: 20110215
  Transmission Date: 20110831
  Serious: Yes (Hospitalization)
  Sender: FDA-Public Use
  Company Number: None

PATIENT
  Age: 69 Year
  Sex: Male
  Weight: 65.7716 kg

DRUGS (1)
  1. DARVOCET [Suspect]
     Indication: BACK PAIN
     Dosage: 1 TABLET 4 TIMES A DAY

REACTIONS (1)
  - MALAISE [None]
